FAERS Safety Report 19843209 (Version 1)
Quarter: 2021Q3

REPORT INFORMATION
  Report Type: Report from Study
  Country: US (occurrence: US)
  Receive Date: 20210917
  Receipt Date: 20210917
  Transmission Date: 20211014
  Serious: Yes (Hospitalization)
  Sender: FDA-Public Use
  Company Number: US-ROCHE-2909426

PATIENT
  Age: 70 Year
  Sex: Male
  Weight: 79.1 kg

DRUGS (3)
  1. VENETOCLAX. [Suspect]
     Active Substance: VENETOCLAX
     Indication: CHRONIC LYMPHOCYTIC LEUKAEMIA
     Dosage: 20 MG PO QD DAYS 1?7 CYCLE 3, 50 MG PO QD DAYS 8?14, CYCLE 3, 100 MG PO QD DAYS 15? 21, CYCLE 3, 200
     Route: 048
     Dates: start: 20210330
  2. IBRUTINIB [Suspect]
     Active Substance: IBRUTINIB
     Indication: CHRONIC LYMPHOCYTIC LEUKAEMIA
     Dosage: LAST DATE ADMONISTERED 25?AUG?2021
     Route: 065
     Dates: start: 20210330
  3. OBINUTUZUMAB. [Suspect]
     Active Substance: OBINUTUZUMAB
     Indication: CHRONIC LYMPHOCYTIC LEUKAEMIA
     Dosage: DAYS 1, 2, 8, AND 15 OF CYCLE 1, AND ON DAY 1 OF CYCLES 2?6
     Route: 042
     Dates: start: 20210330, end: 20210817

REACTIONS (2)
  - Dermatitis [Recovering/Resolving]
  - Erythema [Recovering/Resolving]

NARRATIVE: CASE EVENT DATE: 20210825
